FAERS Safety Report 8581373-5 (Version None)
Quarter: 2012Q3

REPORT INFORMATION
  Report Type: 
  Country: None (occurrence: None)
  Receive Date: 20120727
  Receipt Date: 20120716
  Transmission Date: 20120928
  Serious: Yes (Death)
  Sender: FDA-Public Use
  Company Number: 134744-1

PATIENT
  Age: 71 Year
  Sex: Male
  Weight: 67 kg

DRUGS (2)
  1. LEUCOVORIN CALCIUM [Suspect]
     Indication: COLON CANCER METASTATIC
     Dosage: 400MG/M2 ON DAY ONE EVERY 14 DAYS
     Dates: start: 20120417
  2. SEE IMAGE [Concomitant]

REACTIONS (1)
  - CARDIAC ARREST [None]
